FAERS Safety Report 7519372-4 (Version None)
Quarter: 2011Q2

REPORT INFORMATION
  Report Type: 
  Country: None (occurrence: None)
  Receive Date: 20110602
  Receipt Date: 20110519
  Transmission Date: 20111010
  Serious: Yes (Other)
  Sender: FDA-Public Use
  Company Number: PHHY2011TW42984

PATIENT
  Age: 42 Year
  Sex: Female
  Weight: 46 kg

DRUGS (2)
  1. ACETAMINOPHEN [Suspect]
     Indication: NASOPHARYNGEAL CANCER
     Dosage: 4 TABLETS,500 MG, UNK
  2. IBUPROFEN [Suspect]
     Indication: NASOPHARYNGEAL CANCER
     Dosage: 400 MG DAILY

REACTIONS (12)
  - MIGRAINE [None]
  - HEADACHE [None]
  - DRUG ABUSE [None]
  - DRUG DEPENDENCE [None]
  - NAUSEA [None]
  - PANIC ATTACK [None]
  - PAIN [None]
  - DEPRESSION [None]
  - VOMITING [None]
  - PHONOPHOBIA [None]
  - PHOTOPHOBIA [None]
  - PARAESTHESIA [None]
